FAERS Safety Report 8396647 (Version 3)
Quarter: 2013Q2

REPORT INFORMATION
  Report Type: Report from Study
  Country: MX (occurrence: MX)
  Receive Date: 20120208
  Receipt Date: 20130417
  Transmission Date: 20140414
  Serious: Yes (Death, Hospitalization)
  Sender: FDA-Public Use
  Company Number: PHHY2012MX009810

PATIENT
  Age: 88 Year
  Sex: Male

DRUGS (1)
  1. CO-DIOVAN [Suspect]
     Indication: HYPERTENSION
     Dosage: 1 DF (160 MG VALS AND 12.5 MG HYDRO), DAILY
     Route: 048
     Dates: end: 201201

REACTIONS (6)
  - Cardiac failure [Fatal]
  - Infarction [Fatal]
  - Hernia [Unknown]
  - Flank pain [Unknown]
  - Somnolence [Unknown]
  - Decreased appetite [Unknown]
